FAERS Safety Report 13074726 (Version 1)
Quarter: 2016Q4

REPORT INFORMATION
  Report Type: Spontaneous
  Country: US (occurrence: US)
  Receive Date: 20161230
  Receipt Date: 20161230
  Transmission Date: 20170207
  Serious: No
  Sender: FDA-Public Use
  Company Number: US-TEVA-701706USA

PATIENT
  Age: 79 Year
  Sex: Female
  Weight: 58.57 kg

DRUGS (3)
  1. CLONIDINE. [Concomitant]
     Active Substance: CLONIDINE
  2. TRAZODONE [Suspect]
     Active Substance: TRAZODONE HYDROCHLORIDE
     Indication: SLEEP DISORDER
     Dates: start: 20160909, end: 20160909
  3. TRAZODONE [Suspect]
     Active Substance: TRAZODONE HYDROCHLORIDE
     Indication: DEPRESSION

REACTIONS (6)
  - Insomnia [Unknown]
  - Nasal congestion [Unknown]
  - Dizziness [Unknown]
  - Feeling abnormal [Unknown]
  - Lethargy [Unknown]
  - Balance disorder [Unknown]

NARRATIVE: CASE EVENT DATE: 20160910
